FAERS Safety Report 18401404 (Version 1)
Quarter: 2020Q4

REPORT INFORMATION
  Report Type: Spontaneous
  Country: FR (occurrence: FR)
  Receive Date: 20201019
  Receipt Date: 20201019
  Transmission Date: 20210114
  Serious: Yes (Hospitalization)
  Sender: FDA-Public Use
  Company Number: NVSC2020FR275071

PATIENT
  Age: 40 Year
  Sex: Male

DRUGS (3)
  1. AUGMENTIN [Suspect]
     Active Substance: AMOXICILLIN\CLAVULANATE POTASSIUM
     Indication: DIVERTICULUM INTESTINAL
     Dosage: UNK
     Route: 065
  2. CIFLOX [Suspect]
     Active Substance: CIPROFLOXACIN
     Indication: DIVERTICULUM INTESTINAL
     Dosage: UNK
     Route: 048
     Dates: start: 201910, end: 202001
  3. FLAGYL [Suspect]
     Active Substance: METRONIDAZOLE\METRONIDAZOLE HYDROCHLORIDE
     Indication: DIVERTICULUM INTESTINAL
     Dosage: UNK
     Route: 048
     Dates: start: 201910, end: 202001

REACTIONS (1)
  - Clostridium difficile colitis [Recovered/Resolved]

NARRATIVE: CASE EVENT DATE: 20200110
